FAERS Safety Report 7802290-1 (Version None)
Quarter: 2011Q4

REPORT INFORMATION
  Report Type: 
  Country: None (occurrence: None)
  Receive Date: 20111007
  Receipt Date: 20110927
  Transmission Date: 20120403
  Serious: Yes (Other)
  Sender: FDA-Public Use
  Company Number: CA-JNJFOC-20110912279

PATIENT
  Sex: Male
  Weight: 74 kg

DRUGS (2)
  1. REMICADE [Suspect]
     Indication: CROHN'S DISEASE
     Route: 042
     Dates: start: 20110101
  2. AN UNKNOWN MEDICATION [Concomitant]
     Indication: INSOMNIA

REACTIONS (1)
  - NEPHROLITHIASIS [None]
